FAERS Safety Report 18471894 (Version 1)
Quarter: 2020Q4

REPORT INFORMATION
  Report Type: Spontaneous
  Country: US (occurrence: US)
  Receive Date: 20201106
  Receipt Date: 20201106
  Transmission Date: 20210114
  Serious: No
  Sender: FDA-Public Use
  Company Number: US-ASTRAZENECA-2020SF33777

PATIENT
  Age: 28754 Day
  Sex: Female
  Weight: 77.6 kg

DRUGS (1)
  1. SYMBICORT [Suspect]
     Active Substance: BUDESONIDE\FORMOTEROL FUMARATE DIHYDRATE
     Indication: CHRONIC OBSTRUCTIVE PULMONARY DISEASE
     Dosage: 2 PUFFS IN THE MORNING, 2 PUFFS IN THE EVENING
     Route: 055

REACTIONS (5)
  - Blood pressure increased [Unknown]
  - Malaise [Recovering/Resolving]
  - Tremor [Recovering/Resolving]
  - Product administration error [Unknown]
  - Intentional device misuse [Unknown]

NARRATIVE: CASE EVENT DATE: 20201008
